FAERS Safety Report 10271338 (Version 1)
Quarter: 2014Q3

REPORT INFORMATION
  Report Type: Spontaneous
  Country: US (occurrence: US)
  Receive Date: 20140701
  Receipt Date: 20140701
  Transmission Date: 20150326
  Serious: Yes (Other)
  Sender: FDA-Public Use
  Company Number: US-PFIZER INC-2014176738

PATIENT
  Sex: Female
  Weight: 79.37 kg

DRUGS (2)
  1. LYRICA [Suspect]
     Active Substance: PREGABALIN
     Indication: FIBROMYALGIA
     Dosage: 400 MG (200MG X2), 1X/DAY
     Route: 048
     Dates: end: 2014
  2. METHADONE [Concomitant]
     Active Substance: METHADONE HYDROCHLORIDE
     Dosage: 5 MG, 2X/DAY

REACTIONS (8)
  - Uterine disorder [Unknown]
  - Dysstasia [Unknown]
  - Hyperhidrosis [Unknown]
  - Gastrointestinal disorder [Unknown]
  - Aphagia [Unknown]
  - Pneumonia bacterial [Unknown]
  - Coma [Recovered/Resolved]
  - Aspiration [Unknown]
